FAERS Safety Report 12692964 (Version 1)
Quarter: 2016Q3

REPORT INFORMATION
  Report Type: Spontaneous
  Country: US (occurrence: None)
  Receive Date: 20160826
  Receipt Date: 20160826
  Transmission Date: 20161109
  Serious: Yes (Hospitalization, Disabling)
  Sender: FDA-Public Use
  Company Number: None

PATIENT
  Age: 33 Year
  Sex: Male
  Weight: 113.4 kg

DRUGS (10)
  1. DIAZEPAM. [Concomitant]
     Active Substance: DIAZEPAM
  2. MAGNESIUM OXIDE. [Concomitant]
     Active Substance: MAGNESIUM OXIDE
  3. QUETIAPINE. [Concomitant]
     Active Substance: QUETIAPINE
  4. FISH OIL [Concomitant]
     Active Substance: FISH OIL
  5. VITAMIN D3 [Concomitant]
     Active Substance: CHOLECALCIFEROL
  6. PAROXETINE, 10 MG [Suspect]
     Active Substance: PAROXETINE
     Indication: PANIC DISORDER
     Route: 048
  7. MULTI-VITAMIN WITH MINERALS [Concomitant]
  8. BISOPROLOL [Concomitant]
     Active Substance: BISOPROLOL
  9. LORAZEPAM. [Concomitant]
     Active Substance: LORAZEPAM
  10. COQ10 [Concomitant]
     Active Substance: UBIDECARENONE

REACTIONS (12)
  - Chest discomfort [None]
  - Myoclonus [None]
  - Malaise [None]
  - Pain in jaw [None]
  - Pyrexia [None]
  - Night sweats [None]
  - Product use issue [None]
  - Nausea [None]
  - Serotonin syndrome [None]
  - Headache [None]
  - Drug effect increased [None]
  - Product quality issue [None]

NARRATIVE: CASE EVENT DATE: 20160819
